FAERS Safety Report 8680502 (Version 2)
Quarter: 2012Q4

REPORT INFORMATION
  Report Type: 
  Country: NZ (occurrence: NZ)
  Receive Date: 20120724
  Receipt Date: 20120926
  Transmission Date: 20130627
  Serious: Yes (Hospitalization)
  Sender: FDA-Public Use
  Company Number: PHHO2008NZ14984

PATIENT
  Age: 72 Year
  Sex: Male
  Weight: 70 kg

DRUGS (4)
  1. DEXAMETHASONE [Suspect]
     Dosage: 4 mg, QD
     Route: 048
     Dates: start: 20081015
  2. ZOLEDRONATE [Suspect]
     Indication: PROSTATE CANCER
     Dosage: 4.0mg
     Route: 042
     Dates: start: 20080927, end: 20081113
  3. VITAMIN D [Concomitant]
     Indication: PROSTATE CANCER
  4. CALCIUM [Concomitant]
     Indication: PROSTATE CANCER

REACTIONS (4)
  - Blood glucose increased [Recovered/Resolved with Sequelae]
  - Confusional state [Recovered/Resolved with Sequelae]
  - Pyrexia [Recovered/Resolved with Sequelae]
  - Metastases to central nervous system [Unknown]
